FAERS Safety Report 21683128 (Version 2)
Quarter: 2022Q4

REPORT INFORMATION
  Report Type: Report from Study
  Country: GB (occurrence: GB)
  Receive Date: 20221205
  Receipt Date: 20221209
  Transmission Date: 20230113
  Serious: Yes (Death)
  Sender: FDA-Public Use
  Company Number: GB-PFIZER INC-202201345481

PATIENT

DRUGS (4)
  1. OXALIPLATIN [Suspect]
     Active Substance: OXALIPLATIN
     Indication: Rectal cancer
     Dosage: 130 MG/M2, EVERY 3 WEEKS
  2. CAPECITABINE [Suspect]
     Active Substance: CAPECITABINE
     Indication: Rectal cancer
     Dosage: DIVIDED INTO TWO SPLIT DOSES FOR 14 DAYS FOLLOWED BY 7 DAYS OF REST REPEATED EVERY 3 WEEKS
     Route: 048
  3. CAPECITABINE [Suspect]
     Active Substance: CAPECITABINE
     Dosage: DAILY CONTINUOUSLY WITHOUT INTERRUPTION
     Route: 048
  4. CAPECITABINE [Suspect]
     Active Substance: CAPECITABINE
     Dosage: DAILY FOR 14 DAYS FOLLOWED BY 7 DAYS OF REST
     Route: 048

REACTIONS (1)
  - Cardiac failure [Fatal]
